FAERS Safety Report 10189143 (Version 2)
Quarter: 2014Q2

REPORT INFORMATION
  Report Type: Spontaneous
  Country: US (occurrence: US)
  Receive Date: 20140522
  Receipt Date: 20140530
  Transmission Date: 20141212
  Serious: Yes (Hospitalization, Other)
  Sender: FDA-Public Use
  Company Number: US-BAXTER-2014BAX025802

PATIENT
  Sex: Male

DRUGS (4)
  1. DIANEAL LOW CALCIUM [Suspect]
     Indication: PERITONEAL DIALYSIS
     Route: 033
     Dates: end: 201405
  2. DIANEAL LOW CALCIUM [Suspect]
     Route: 033
     Dates: end: 201405
  3. DIANEAL LOW CALCIUM [Suspect]
     Indication: PERITONEAL DIALYSIS
     Route: 033
  4. DIANEAL LOW CALCIUM (ULTRABAG) [Suspect]
     Indication: PERITONEAL DIALYSIS
     Route: 033
     Dates: start: 20140521

REACTIONS (6)
  - Renal failure chronic [Not Recovered/Not Resolved]
  - Renal failure acute [Recovering/Resolving]
  - Confusional state [Recovered/Resolved]
  - Peritoneal dialysis complication [Unknown]
  - Abdominal pain [Recovered/Resolved]
  - Muscle spasms [Recovered/Resolved]
